FAERS Safety Report 16596752 (Version 2)
Quarter: 2019Q3

REPORT INFORMATION
  Report Type: Report from Study
  Country: CA (occurrence: CA)
  Receive Date: 20190719
  Receipt Date: 20190802
  Transmission Date: 20191004
  Serious: Yes (Death)
  Sender: FDA-Public Use
  Company Number: CA-TAIHO ONCOLOGY  INC-EU-2019-02372

PATIENT
  Age: 65 Year
  Sex: Female

DRUGS (6)
  1. TYLENOL EXTRA STRENGTH [Concomitant]
     Active Substance: ACETAMINOPHEN
  2. LONSURF [Suspect]
     Active Substance: TIPIRACIL HYDROCHLORIDE\TRIFLURIDINE
     Indication: RECTAL CANCER METASTATIC
     Dosage: CYCLE AT TIME OF DEATH UNKNOWN
     Route: 048
     Dates: start: 20190204, end: 20190328
  3. TYLENOL [Concomitant]
     Active Substance: ACETAMINOPHEN
  4. LONSURF [Suspect]
     Active Substance: TIPIRACIL HYDROCHLORIDE\TRIFLURIDINE
     Dosage: CYCLE 2
     Route: 048
     Dates: start: 20190304
  5. PROCHLORAZINE [Concomitant]
  6. PROLIA [Concomitant]
     Active Substance: DENOSUMAB
     Dosage: Q6M

REACTIONS (1)
  - Rectal cancer metastatic [Fatal]

NARRATIVE: CASE EVENT DATE: 20190531
